FAERS Safety Report 5090107-0 (Version None)
Quarter: 2006Q3

REPORT INFORMATION
  Report Type: 
  Country: None (occurrence: None)
  Receive Date: 20060823
  Receipt Date: 20060814
  Transmission Date: 20061208
  Serious: Yes (Hospitalization)
  Sender: FDA-Public Use
  Company Number: 2006097648

PATIENT
  Age: 56 Year
  Sex: Female
  Weight: 52.6173 kg

DRUGS (2)
  1. SUTENT [Suspect]
     Indication: NEOPLASM
     Dosage: 37.5 MG (37.5 MG, FREQUENCY: QD - INTERVAL: 14/21 DAYS), ORAL
     Route: 048
     Dates: start: 20060619
  2. TAXOTERE [Suspect]
     Indication: NON-SMALL CELL LUNG CANCER
     Dosage: 118 MG (75 MG/M*2, FREQ:  Q21DAY, INTERVAL:  X1DAY Q21DAY), INTRAVENOUS
     Route: 042
     Dates: start: 20060619

REACTIONS (3)
  - INFECTION [None]
  - MASS [None]
  - NEUTROPHIL COUNT DECREASED [None]
